FAERS Safety Report 7438441-0 (Version None)
Quarter: 2011Q2

REPORT INFORMATION
  Report Type: 
  Country: None (occurrence: None)
  Receive Date: 20110408
  Receipt Date: 20110328
  Transmission Date: 20111010
  Serious: Yes (Other)
  Sender: FDA-Public Use
  Company Number: CA-145125

PATIENT
  Sex: Female

DRUGS (1)
  1. WINRHO [Suspect]
     Indication: IDIOPATHIC THROMBOCYTOPENIC PURPURA
     Dosage: (4000 ?G INTRAVENOUS)
     Route: 042
     Dates: start: 20080915, end: 20080915

REACTIONS (6)
  - ANTIBODY TEST POSITIVE [None]
  - RED BLOOD CELL SPHEROCYTES PRESENT [None]
  - COOMBS DIRECT TEST POSITIVE [None]
  - HAEMOGLOBIN DECREASED [None]
  - BLOOD BILIRUBIN INCREASED [None]
  - HAEMOLYTIC TRANSFUSION REACTION [None]
